FAERS Safety Report 17270059 (Version 1)
Quarter: 2020Q1

REPORT INFORMATION
  Report Type: Spontaneous
  Country: CN (occurrence: CN)
  Receive Date: 20200114
  Receipt Date: 20200114
  Transmission Date: 20200409
  Serious: Yes (Hospitalization)
  Sender: FDA-Public Use
  Company Number: CN-JNJFOC-20200110373

PATIENT
  Age: 6 Year
  Sex: Female

DRUGS (1)
  1. TOPAMAX [Suspect]
     Active Substance: TOPIRAMATE
     Indication: UPPER RESPIRATORY TRACT INFECTION BACTERIAL
     Route: 048
     Dates: start: 20191229

REACTIONS (2)
  - Product prescribing error [Unknown]
  - Blindness transient [Recovered/Resolved]

NARRATIVE: CASE EVENT DATE: 20191229
